FAERS Safety Report 21370393 (Version 2)
Quarter: 2022Q4

REPORT INFORMATION
  Report Type: Spontaneous
  Country: US (occurrence: US)
  Receive Date: 20220923
  Receipt Date: 20221020
  Transmission Date: 20230112
  Serious: Yes (Other)
  Sender: FDA-Public Use
  Company Number: US-AMGEN-USASP2022158669

PATIENT
  Age: 57 Year
  Sex: Female

DRUGS (8)
  1. BEVACIZUMAB [Suspect]
     Active Substance: BEVACIZUMAB
     Indication: Glaucoma
     Dosage: 1.25 MILLIGRAM/0.05 ML
  2. TIMOLOL [Concomitant]
     Active Substance: TIMOLOL
     Indication: Intraocular pressure increased
     Dosage: 3 ROUNDS (OS)
     Route: 061
  3. BRIMONIDINE [Concomitant]
     Active Substance: BRIMONIDINE TARTRATE
     Indication: Intraocular pressure increased
     Dosage: 3 ROUNDS (OS)
     Route: 061
  4. DORZOLAMIDE [Concomitant]
     Active Substance: DORZOLAMIDE
     Indication: Intraocular pressure increased
     Dosage: 3 ROUNDS (OS)
     Route: 061
  5. LATANOPROST [Concomitant]
     Active Substance: LATANOPROST
     Indication: Intraocular pressure increased
     Dosage: 3 ROUNDS (OS)
     Route: 061
  6. ACETAZOLAMIDE [Concomitant]
     Active Substance: ACETAZOLAMIDE
     Indication: Intraocular pressure increased
     Dosage: 500 MILLIGRAM, TID (OS)
     Route: 048
  7. ACETAZOLAMIDE [Concomitant]
     Active Substance: ACETAZOLAMIDE
     Dosage: 500 MILLIGRAM, QD (OS)
     Route: 048
  8. NETARSUDIL [Concomitant]
     Active Substance: NETARSUDIL

REACTIONS (4)
  - Glaucoma [Unknown]
  - Hyphaema [Unknown]
  - Drug effective for unapproved indication [Unknown]
  - Off label use [Unknown]
